FAERS Safety Report 17184954 (Version 1)
Quarter: 2019Q4

REPORT INFORMATION
  Report Type: Spontaneous
  Country: US (occurrence: US)
  Receive Date: 20191220
  Receipt Date: 20191220
  Transmission Date: 20200122
  Serious: Yes (Other)
  Sender: FDA-Public Use
  Company Number: US-AKORN PHARMACEUTICALS-2019AKN02497

PATIENT
  Sex: Female

DRUGS (3)
  1. MYORISAN [Suspect]
     Active Substance: ISOTRETINOIN
     Dosage: 10 MG, 2X/DAY (AVERAGE DAILY DOSE: 20 MG)
     Dates: start: 20191003, end: 20191205
  2. ISOTRETINOIN (AMNEAL PHARMACEUTICALS, LLC) [Suspect]
     Active Substance: ISOTRETINOIN
     Dosage: 10 MG, 2X/DAY (AVERAGE DAILY DOSE: 20 MG)
     Dates: start: 20191024, end: 2019
  3. BIRTH CONTROL PILLS (UNSPECIFIED) [Concomitant]
     Active Substance: UNSPECIFIED INGREDIENT

REACTIONS (1)
  - Exposure during pregnancy [Not Recovered/Not Resolved]

NARRATIVE: CASE EVENT DATE: 2019
